FAERS Safety Report 4284630-6 (Version None)
Quarter: 2004Q1

REPORT INFORMATION
  Report Type: 
  Country: None (occurrence: None)
  Receive Date: 20040130
  Receipt Date: 20040112
  Transmission Date: 20041129
  Serious: Yes (Life-Threatening)
  Sender: FDA-Public Use
  Company Number: DE_031112394

PATIENT
  Age: 64 Year
  Sex: Female
  Weight: 44 kg

DRUGS (3)
  1. GEMZAR [Suspect]
     Indication: OVARIAN CANCER
     Dosage: 1168 MG
     Route: 042
     Dates: start: 20031010, end: 20031017
  2. PACLITAXEL [Suspect]
     Indication: OVARIAN CANCER
     Dosage: 255.5 MG
     Dates: start: 20031010, end: 20031010
  3. CARBOPLATIN [Suspect]
     Indication: OVARIAN CANCER
     Dosage: 600 MG
     Dates: start: 20031010, end: 20031010

REACTIONS (3)
  - ENDOCARDITIS [None]
  - PYREXIA [None]
  - SEPSIS [None]
